FAERS Safety Report 15348721 (Version 9)
Quarter: 2018Q4

REPORT INFORMATION
  Report Type: Spontaneous
  Country: FR (occurrence: FR)
  Receive Date: 20180904
  Receipt Date: 20181129
  Transmission Date: 20190204
  Serious: Yes (Other)
  Sender: FDA-Public Use
  Company Number: FR-PFIZER INC-2018345317

PATIENT
  Age: 69 Year
  Sex: Female

DRUGS (7)
  1. PAROXETINE. [Concomitant]
     Active Substance: PAROXETINE
     Indication: ANXIETY
     Dosage: UNK
  2. IBRANCE [Suspect]
     Active Substance: PALBOCICLIB
     Indication: BREAST CANCER METASTATIC
     Dosage: 125 MG, DAILY
     Dates: start: 2018, end: 2018
  3. IBRANCE [Suspect]
     Active Substance: PALBOCICLIB
     Dosage: 100 MG, DAILY
     Dates: start: 20180816, end: 20180825
  4. ZOLPIDEM [Concomitant]
     Active Substance: ZOLPIDEM\ZOLPIDEM TARTRATE
     Dosage: UNK
     Dates: start: 2009
  5. IBRANCE [Suspect]
     Active Substance: PALBOCICLIB
     Dosage: 75 MG, DAILY
     Dates: start: 2018
  6. LETROZOLE. [Suspect]
     Active Substance: LETROZOLE
     Indication: BREAST CANCER
     Dosage: 2.5 MG, UNK
     Dates: start: 20180816, end: 20180825
  7. LETROZOLE. [Suspect]
     Active Substance: LETROZOLE
     Dosage: 2.5 MG, UNK
     Dates: start: 2018

REACTIONS (39)
  - Monoplegia [Recovered/Resolved]
  - Neuropathy peripheral [Recovered/Resolved]
  - Platelet count decreased [Unknown]
  - Chills [Unknown]
  - Alopecia [Recovered/Resolved]
  - Pain in extremity [Unknown]
  - Nausea [Unknown]
  - Red blood cell count decreased [Not Recovered/Not Resolved]
  - Poor peripheral circulation [Unknown]
  - Dysgeusia [Recovered/Resolved]
  - Neutrophil count decreased [Recovered/Resolved]
  - Rash pruritic [Not Recovered/Not Resolved]
  - White blood cell count decreased [Not Recovered/Not Resolved]
  - Renal failure [Unknown]
  - Feeling cold [Recovered/Resolved]
  - Chest discomfort [Recovered/Resolved]
  - Photopsia [Recovered/Resolved]
  - Anaemia [Unknown]
  - Paraesthesia [Recovered/Resolved]
  - Drug hypersensitivity [Unknown]
  - Tooth deposit [Unknown]
  - Influenza [Unknown]
  - Visual impairment [Unknown]
  - Burning sensation [Unknown]
  - Aplasia [Recovered/Resolved]
  - Diarrhoea [Unknown]
  - Sensitivity of teeth [Unknown]
  - Blood immunoglobulin E increased [Unknown]
  - Dyspnoea [Recovering/Resolving]
  - Gamma-glutamyltransferase increased [Unknown]
  - Fatigue [Recovering/Resolving]
  - Rash pustular [Not Recovered/Not Resolved]
  - Mobility decreased [Unknown]
  - Impaired healing [Unknown]
  - Skin exfoliation [Recovered/Resolved]
  - Skin discolouration [Unknown]
  - Rash erythematous [Not Recovered/Not Resolved]
  - Contusion [Unknown]
  - Abdominal pain upper [Unknown]

NARRATIVE: CASE EVENT DATE: 2018
